FAERS Safety Report 24746920 (Version 6)
Quarter: 2025Q2

REPORT INFORMATION
  Report Type: Spontaneous
  Country: US (occurrence: US)
  Receive Date: 20241218
  Receipt Date: 20250401
  Transmission Date: 20250716
  Serious: No
  Sender: KARYOPHARM THERAPEUTICS
  Company Number: US-KARYOPHARM-2024KPT001894

PATIENT

DRUGS (12)
  1. XPOVIO [Suspect]
     Active Substance: SELINEXOR
     Indication: Brain neoplasm malignant
     Route: 048
  2. XPOVIO [Suspect]
     Active Substance: SELINEXOR
     Route: 048
  3. XPOVIO [Suspect]
     Active Substance: SELINEXOR
     Route: 048
     Dates: start: 202502
  4. MOZOBIL [Concomitant]
     Active Substance: PLERIXAFOR
     Route: 058
  5. CELEBREX [Concomitant]
     Active Substance: CELECOXIB
  6. METFORMIN [Concomitant]
     Active Substance: METFORMIN HYDROCHLORIDE
  7. AMLODIPINE [Concomitant]
     Active Substance: AMLODIPINE BESYLATE
  8. BRIVIACT [Concomitant]
     Active Substance: BRIVARACETAM
  9. KISQALI [Concomitant]
     Active Substance: RIBOCICLIB
  10. LEVOTHYROXINE [Concomitant]
     Active Substance: LEVOTHYROXINE
  11. ONDANSETRON [Concomitant]
     Active Substance: ONDANSETRON
  12. XCOPRI [Concomitant]
     Active Substance: CENOBAMATE

REACTIONS (2)
  - Off label use [Unknown]
  - No adverse event [Unknown]
